FAERS Safety Report 6168625-3 (Version None)
Quarter: 2009Q2

REPORT INFORMATION
  Report Type: 
  Country: None (occurrence: None)
  Receive Date: 20090424
  Receipt Date: 20090424
  Transmission Date: 20091009
  Serious: No
  Sender: FDA-Public Use
  Company Number: None

PATIENT
  Age: 76 Year
  Sex: Male

DRUGS (2)
  1. PLAVIX [Suspect]
     Dosage: PLAVIX PO
     Route: 048
  2. ASPIRIN [Suspect]
     Dosage: ASPIRIN 81 MG DAILY PO
     Route: 048

REACTIONS (5)
  - ASTHENIA [None]
  - DEEP VEIN THROMBOSIS [None]
  - FALL [None]
  - INTERNATIONAL NORMALISED RATIO INCREASED [None]
  - SUBDURAL HAEMATOMA [None]
